FAERS Safety Report 22366741 (Version 3)
Quarter: 2023Q2

REPORT INFORMATION
  Report Type: Report from Study
  Country: US (occurrence: US)
  Receive Date: 20230525
  Receipt Date: 20230607
  Transmission Date: 20230721
  Serious: Yes (Other)
  Sender: FDA-Public Use
  Company Number: US-ABBVIE-5177563

PATIENT
  Sex: Female

DRUGS (3)
  1. IMBRUVICA [Suspect]
     Active Substance: IBRUTINIB
     Indication: Chronic lymphocytic leukaemia
     Route: 048
     Dates: start: 20161010
  2. IMBRUVICA [Suspect]
     Active Substance: IBRUTINIB
     Indication: Chronic lymphocytic leukaemia
     Route: 048
     Dates: start: 20170101, end: 20191001
  3. IMBRUVICA [Suspect]
     Active Substance: IBRUTINIB
     Indication: Chronic lymphocytic leukaemia
     Route: 048
     Dates: start: 20230605

REACTIONS (9)
  - Nephropathy toxic [Unknown]
  - Nerve compression [Unknown]
  - Kidney infection [Recovered/Resolved with Sequelae]
  - Urinary retention [Unknown]
  - White blood cell count abnormal [Unknown]
  - Cystitis [Recovered/Resolved with Sequelae]
  - Renal disorder [Unknown]
  - Blood creatinine increased [Unknown]
  - Urinary bladder toxicity [Unknown]

NARRATIVE: CASE EVENT DATE: 20190101
